FAERS Safety Report 4892152-4 (Version None)
Quarter: 2006Q1

REPORT INFORMATION
  Report Type: 
  Country: None (occurrence: None)
  Receive Date: 20060124
  Receipt Date: 20060111
  Transmission Date: 20060701
  Serious: Yes (Hospitalization)
  Sender: FDA-Public Use
  Company Number: 230007M06USA

PATIENT
  Age: 39 Year
  Sex: Female

DRUGS (1)
  1. REBIF [Suspect]
     Indication: MULTIPLE SCLEROSIS
     Dosage: 22 MCG, 3 IN 1 WEEKS,SUBCUTANEOUS
     Route: 058
     Dates: start: 20020814

REACTIONS (8)
  - CATHETER SITE RELATED REACTION [None]
  - CELLULITIS [None]
  - HYPERNATRAEMIA [None]
  - HYPERTHYROIDISM [None]
  - KLEBSIELLA INFECTION [None]
  - MENTAL STATUS CHANGES [None]
  - ORAL INTAKE REDUCED [None]
  - RENAL FAILURE [None]
